FAERS Safety Report 10075863 (Version 1)
Quarter: 2014Q2

REPORT INFORMATION
  Report Type: Report from Study
  Country: JP (occurrence: JP)
  Receive Date: 20140414
  Receipt Date: 20140414
  Transmission Date: 20141212
  Serious: Yes (Other)
  Sender: FDA-Public Use
  Company Number: JP-PFIZER INC-2014100813

PATIENT
  Sex: 0
  Weight: 1.73 kg

DRUGS (1)
  1. HEPARIN SODIUM [Suspect]
     Indication: ANTICOAGULANT THERAPY
     Dosage: UNK
     Route: 064

REACTIONS (2)
  - Exposure during pregnancy [Unknown]
  - Premature baby [Unknown]
